FAERS Safety Report 4766305-X (Version None)
Quarter: 2005Q3

REPORT INFORMATION
  Report Type: 
  Country: None (occurrence: None)
  Receive Date: 20050909
  Receipt Date: 20050812
  Transmission Date: 20060218
  Serious: Yes (Hospitalization)
  Sender: FDA-Public Use
  Company Number: 6016660

PATIENT
  Age: 68 Year
  Sex: Male

DRUGS (12)
  1. DAPA-TABS (TABLET) (INDAPAMIDE) [Suspect]
     Indication: ESSENTIAL HYPERTENSION
     Dosage: 2 MG (2 MG, 1 D)
     Dates: end: 20040424
  2. QUINATE (TABLET) (QUININE SULFATE) [Suspect]
     Dosage: ORAL
     Route: 048
     Dates: end: 20040424
  3. COVERSYL PLUS (TABLET) (INDAPAMIDE, PERINDOPRIL ERBUMINE) [Suspect]
     Indication: ESSENTIAL HYPERTENSION
     Dosage: 4 MG (4 MG, 1 D) ORAL
     Route: 048
  4. INDOCID (CAPSULE) (INDOMETACIN) [Suspect]
     Indication: GOUT
     Dosage: 100 MG (100 MG, 1 D) ORAL
     Route: 048
     Dates: end: 20040424
  5. MAXOLON (TABLET) (METOCLOPRAMIDE HYDROCHLORIDE) [Concomitant]
  6. PANAMAX (PARACETAMOL) [Concomitant]
  7. SLOW-K (TABLET) (POTASSIUM CHLORIDE) [Concomitant]
  8. NORVASC (TABLET) (AMLODIPINE BESILATE) [Concomitant]
  9. LOSEC (OMEPRAZOLE) [Concomitant]
  10. ASTRIX 100 (CAPSULE) (ACETYLSALICYLIC ACID) [Concomitant]
  11. ZYLOPRIM [Concomitant]
  12. COLGOUT (TABLET) (COLCHICINE) [Concomitant]

REACTIONS (7)
  - ANOREXIA [None]
  - ASTHENIA [None]
  - BLOOD CREATININE INCREASED [None]
  - BLOOD UREA INCREASED [None]
  - DYSARTHRIA [None]
  - NAUSEA [None]
  - RENAL FAILURE ACUTE [None]
